FAERS Safety Report 7804917-7 (Version None)
Quarter: 2011Q4

REPORT INFORMATION
  Report Type: 
  Country: None (occurrence: None)
  Receive Date: 20111010
  Receipt Date: 20111003
  Transmission Date: 20120403
  Serious: Yes (Other)
  Sender: FDA-Public Use
  Company Number: JP-EISAI INC-E2090-01785-SPO-JP

PATIENT

DRUGS (1)
  1. ZONISAMIDE [Suspect]
     Indication: MATERNAL EXPOSURE DURING PREGNANCY
     Dosage: 200 MG DAILY
     Route: 064
     Dates: end: 20110714

REACTIONS (3)
  - LIVER FUNCTION TEST ABNORMAL [None]
  - MATERNAL EXPOSURE DURING PREGNANCY [None]
  - FAECES PALE [None]
